FAERS Safety Report 21831411 (Version 18)
Quarter: 2025Q1

REPORT INFORMATION
  Report Type: Report from Study
  Country: CA (occurrence: CA)
  Receive Date: 20230106
  Receipt Date: 20250211
  Transmission Date: 20250408
  Serious: Yes (Other)
  Sender: TAKEDA
  Company Number: CA-TAKEDA-2021TUS040704

PATIENT
  Age: 79 Year
  Sex: Male

DRUGS (19)
  1. VEDOLIZUMAB [Suspect]
     Active Substance: VEDOLIZUMAB
     Indication: Crohn^s disease
  2. VEDOLIZUMAB [Suspect]
     Active Substance: VEDOLIZUMAB
  3. VEDOLIZUMAB [Suspect]
     Active Substance: VEDOLIZUMAB
  4. VEDOLIZUMAB [Suspect]
     Active Substance: VEDOLIZUMAB
  5. VEDOLIZUMAB [Suspect]
     Active Substance: VEDOLIZUMAB
  6. VEDOLIZUMAB [Suspect]
     Active Substance: VEDOLIZUMAB
  7. VEDOLIZUMAB [Suspect]
     Active Substance: VEDOLIZUMAB
     Dosage: 300 MILLIGRAM, Q4WEEKS
     Dates: start: 20230809
  8. VEDOLIZUMAB [Suspect]
     Active Substance: VEDOLIZUMAB
     Dosage: 300 MILLIGRAM, Q4WEEKS
  9. VEDOLIZUMAB [Suspect]
     Active Substance: VEDOLIZUMAB
     Dosage: 300 MILLIGRAM, Q4WEEKS
  10. VEDOLIZUMAB [Suspect]
     Active Substance: VEDOLIZUMAB
     Dosage: 300 MILLIGRAM, Q4WEEKS
  11. VEDOLIZUMAB [Suspect]
     Active Substance: VEDOLIZUMAB
     Dosage: 300 MILLIGRAM, Q4WEEKS
  12. VEDOLIZUMAB [Suspect]
     Active Substance: VEDOLIZUMAB
     Dosage: 300 MILLIGRAM, Q4WEEKS
  13. VEDOLIZUMAB [Suspect]
     Active Substance: VEDOLIZUMAB
     Dosage: 300 MILLIGRAM, Q4WEEKS
  14. VEDOLIZUMAB [Suspect]
     Active Substance: VEDOLIZUMAB
     Dosage: 300 MILLIGRAM, Q4WEEKS
  15. PENTASA [Concomitant]
     Active Substance: MESALAMINE
  16. PERINDOPRIL [Concomitant]
     Active Substance: PERINDOPRIL
  17. AMLODIPINE [Concomitant]
     Active Substance: AMLODIPINE BESYLATE
  18. CHOLESTYRAMINE [Concomitant]
     Active Substance: CHOLESTYRAMINE
  19. INSULIN NOS [Concomitant]
     Active Substance: INSULIN NOS

REACTIONS (12)
  - Crohn^s disease [Unknown]
  - Lymphoma [Not Recovered/Not Resolved]
  - Blood pressure abnormal [Unknown]
  - Hepatic cancer [Unknown]
  - Fatigue [Unknown]
  - Choking [Not Recovered/Not Resolved]
  - Off label use [Unknown]
  - Blood pressure decreased [Unknown]
  - White blood cell count decreased [Unknown]
  - Drug effect less than expected [Unknown]
  - Constipation [Unknown]
  - Diarrhoea [Recovered/Resolved]

NARRATIVE: CASE EVENT DATE: 20230809
